FAERS Safety Report 4263719-1 (Version None)
Quarter: 2004Q1

REPORT INFORMATION
  Report Type: 
  Country: None (occurrence: None)
  Receive Date: 20040102
  Receipt Date: 20031212
  Transmission Date: 20041129
  Serious: Yes (Other)
  Sender: FDA-Public Use
  Company Number: EWC031136883

PATIENT
  Age: 37 Year
  Sex: Female

DRUGS (1)
  1. PROZAC [Suspect]
     Indication: BORDERLINE PERSONALITY DISORDER

REACTIONS (7)
  - ANXIETY [None]
  - FEELING OF DESPAIR [None]
  - IMPAIRED WORK ABILITY [None]
  - NAUSEA [None]
  - PARANOIA [None]
  - SUICIDAL IDEATION [None]
  - TREMOR [None]
